FAERS Safety Report 8219377-4 (Version None)
Quarter: 2012Q1

REPORT INFORMATION
  Report Type: 
  Country: None (occurrence: None)
  Receive Date: 20120319
  Receipt Date: 20120307
  Transmission Date: 20120608
  Serious: Yes (Hospitalization)
  Sender: FDA-Public Use
  Company Number: JP-ASTRAZENECA-2012SE17308

PATIENT
  Age: 21 Year
  Sex: Female

DRUGS (6)
  1. PHENOBARBITAL TAB [Suspect]
     Route: 048
     Dates: start: 20120303, end: 20120303
  2. LEXOTAN [Suspect]
     Route: 048
     Dates: start: 20120303, end: 20120303
  3. DEPAS [Suspect]
     Route: 048
  4. SEROQUEL [Suspect]
     Indication: SCHIZOPHRENIA
     Route: 048
     Dates: start: 20120303, end: 20120303
  5. PROMAZINE HYDROCHLORIDE [Suspect]
     Route: 048
  6. HALCION [Suspect]
     Route: 048
     Dates: start: 20120303, end: 20120303

REACTIONS (4)
  - NEUROLEPTIC MALIGNANT SYNDROME [None]
  - BLOOD CREATINE PHOSPHOKINASE INCREASED [None]
  - MULTIPLE DRUG OVERDOSE INTENTIONAL [None]
  - PYREXIA [None]
